FAERS Safety Report 9281113 (Version 1)
Quarter: 2013Q2

REPORT INFORMATION
  Report Type: Spontaneous
  Country: US (occurrence: None)
  Receive Date: 20130508
  Receipt Date: 20130508
  Transmission Date: 20140414
  Serious: Yes (Hospitalization)
  Sender: FDA-Public Use
  Company Number: None

PATIENT
  Age: 44 Year
  Sex: Male
  Weight: 86.4 kg

DRUGS (1)
  1. VALPROIC ACID [Suspect]
     Route: 048
     Dates: start: 20121015, end: 20121020

REACTIONS (2)
  - Confusional state [None]
  - Sedation [None]
